FAERS Safety Report 12989391 (Version 1)
Quarter: 2016Q4

REPORT INFORMATION
  Report Type: Spontaneous
  Country: GB (occurrence: GB)
  Receive Date: 20161201
  Receipt Date: 20161201
  Transmission Date: 20170207
  Serious: Yes (Life-Threatening, Other)
  Sender: FDA-Public Use
  Company Number: GB-BAXTER-2016BAX059597

PATIENT
  Sex: Male

DRUGS (1)
  1. PHOXILIUM [Suspect]
     Active Substance: CALCIUM CHLORIDE\MAGNESIUM CHLORIDE\POTASSIUM CHLORIDE\SODIUM BICARBONATE\SODIUM CHLORIDE\SODIUM PHOSPHATE, DIBASIC
     Indication: HAEMODIALYSIS
     Dosage: RIGHT INTERNAL JUGULAR CATHETER IN SITU
     Route: 010

REACTIONS (4)
  - Confusional state [Unknown]
  - Haemorrhage [Unknown]
  - Pulseless electrical activity [Unknown]
  - Restlessness [Unknown]

NARRATIVE: CASE EVENT DATE: 20160904
